FAERS Safety Report 19512345 (Version 2)
Quarter: 2021Q3

REPORT INFORMATION
  Report Type: Spontaneous
  Country: MX (occurrence: MX)
  Receive Date: 20210709
  Receipt Date: 20210716
  Transmission Date: 20211014
  Serious: Yes (Death, Life-Threatening, Other)
  Sender: FDA-Public Use
  Company Number: NVSC2021MX154020

PATIENT
  Sex: Male

DRUGS (1)
  1. GLIVEC [Suspect]
     Active Substance: IMATINIB MESYLATE
     Indication: CHRONIC MYELOID LEUKAEMIA
     Dosage: 600 MG (6 X 100MG TABLETS)
     Route: 065

REACTIONS (16)
  - Anaesthetic complication [Unknown]
  - Dyspnoea [Unknown]
  - Feeding disorder [Unknown]
  - Asthenia [Unknown]
  - Diabetes mellitus [Unknown]
  - Feeling abnormal [Unknown]
  - Illness [Unknown]
  - Contusion [Unknown]
  - Renal failure [Unknown]
  - Rash macular [Unknown]
  - Death [Fatal]
  - Malaise [Unknown]
  - Blood potassium increased [Unknown]
  - Neoplasm malignant [Unknown]
  - Heart rate increased [Unknown]
  - Abdominal pain upper [Unknown]
